FAERS Safety Report 22366384 (Version 1)
Quarter: 2023Q2

REPORT INFORMATION
  Report Type: Spontaneous
  Country: US (occurrence: None)
  Receive Date: 20230524
  Receipt Date: 20230524
  Transmission Date: 20230721
  Serious: No
  Sender: FDA-Public Use
  Company Number: None

PATIENT
  Age: 50 Year
  Sex: Female

DRUGS (10)
  1. DUPIXENT [Suspect]
     Active Substance: DUPILUMAB
     Indication: Eosinophilic oesophagitis
     Dosage: FREQUENCY : WEEKLY;?
     Route: 058
     Dates: start: 20230419, end: 20230510
  2. CEVIMELINE [Concomitant]
     Active Substance: CEVIMELINE
  3. SILDENAFIL [Concomitant]
  4. CLONAZEPAM [Concomitant]
  5. EFFEXOR XR EXTENDED-RELEASE [Concomitant]
     Active Substance: VENLAFAXINE HYDROCHLORIDE
  6. LAMICTAL [Concomitant]
  7. FAMOTIDINE [Concomitant]
     Active Substance: FAMOTIDINE
  8. PANTOPRAZOLE [Concomitant]
  9. LEVOTHYROXINE [Concomitant]
  10. CETIRIZINE [Concomitant]

REACTIONS (4)
  - Dry eye [None]
  - Sjogren^s syndrome [None]
  - Condition aggravated [None]
  - Therapy cessation [None]

NARRATIVE: CASE EVENT DATE: 20230505
